FAERS Safety Report 5916021-3 (Version None)
Quarter: 2008Q4

REPORT INFORMATION
  Report Type: 
  Country: None (occurrence: None)
  Receive Date: 20081013
  Receipt Date: 20081006
  Transmission Date: 20090506
  Serious: Yes (Other)
  Sender: FDA-Public Use
  Company Number: US-JNJFOC-20081001754

PATIENT
  Age: 77 Year
  Sex: Male

DRUGS (4)
  1. REOPRO [Suspect]
     Indication: PERCUTANEOUS CORONARY INTERVENTION
     Dosage: TWELVE HOUR INFUSION (DOSE NOT SPECIFIED), WHICH WAS INTERRUPTED FOR 10 MINUTES.
  2. REOPRO [Suspect]
     Indication: MYOCARDIAL INFARCTION
  3. HEPARIN [Concomitant]
  4. HEPARIN [Concomitant]

REACTIONS (4)
  - HAEMATOMA [None]
  - HYPOTENSION [None]
  - PLATELET COUNT DECREASED [None]
  - SYNCOPE [None]
